FAERS Safety Report 21359530 (Version 4)
Quarter: 2023Q1

REPORT INFORMATION
  Report Type: Spontaneous
  Country: US (occurrence: US)
  Receive Date: 20220921
  Receipt Date: 20230121
  Transmission Date: 20230417
  Serious: Yes (Hospitalization, Other)
  Sender: FDA-Public Use
  Company Number: US-AMGEN-USASP2022159671

PATIENT
  Age: 74 Year
  Sex: Female
  Weight: 62.132 kg

DRUGS (3)
  1. PROLIA [Suspect]
     Active Substance: DENOSUMAB
     Indication: Osteoporosis postmenopausal
     Dosage: UNK
     Route: 030
     Dates: start: 201903
  2. PROLIA [Suspect]
     Active Substance: DENOSUMAB
     Dosage: 60 MILLIGRAM, Q6MO
     Route: 058
  3. LASIX [Concomitant]
     Active Substance: FUROSEMIDE

REACTIONS (4)
  - Comminuted fracture [Recovered/Resolved]
  - Deformity [Unknown]
  - Incorrect route of product administration [Unknown]
  - Fall [Unknown]

NARRATIVE: CASE EVENT DATE: 20190301
